FAERS Safety Report 5140042-4 (Version None)
Quarter: 2006Q4

REPORT INFORMATION
  Report Type: 
  Country: None (occurrence: None)
  Receive Date: 20061025
  Receipt Date: 20061025
  Transmission Date: 20070319
  Serious: No
  Sender: FDA-Public Use
  Company Number: None

PATIENT
  Age: 48 Year
  Sex: Male
  Weight: 82.1011 kg

DRUGS (1)
  1. OPTIRAY 320 [Suspect]

REACTIONS (3)
  - CONTRAST MEDIA REACTION [None]
  - FLUSHING [None]
  - RESPIRATORY DISTRESS [None]
